FAERS Safety Report 8260719-1 (Version None)
Quarter: 2012Q2

REPORT INFORMATION
  Report Type: 
  Country: None (occurrence: None)
  Receive Date: 20120405
  Receipt Date: 20120327
  Transmission Date: 20120825
  Serious: Yes (Hospitalization)
  Sender: FDA-Public Use
  Company Number: US-BIOGENIDEC-2009BI036332

PATIENT
  Age: 53 Year
  Sex: Female

DRUGS (5)
  1. TOPAMAX [Concomitant]
  2. AVONEX [Suspect]
     Indication: MULTIPLE SCLEROSIS
     Route: 030
     Dates: start: 20040514
  3. ZOLOFT [Concomitant]
  4. ASPIRIN [Concomitant]
  5. PRAVASTATIN [Concomitant]

REACTIONS (5)
  - MOOD SWINGS [None]
  - HYPERTENSION [None]
  - FATIGUE [None]
  - STRESS CARDIOMYOPATHY [None]
  - MYOCARDIAL INFARCTION [None]
